FAERS Safety Report 15710948 (Version 1)
Quarter: 2018Q4

REPORT INFORMATION
  Report Type: Spontaneous
  Country: US (occurrence: US)
  Receive Date: 20181211
  Receipt Date: 20181211
  Transmission Date: 20190205
  Serious: No
  Sender: FDA-Public Use
  Company Number: US-PERNIX THERAPEUTICS-US-2018PER001538

PATIENT
  Sex: Female
  Weight: 74.83 kg

DRUGS (5)
  1. IBRANCE [Concomitant]
     Active Substance: PALBOCICLIB
     Indication: BREAST CANCER RECURRENT
     Dosage: 100 MILLIGRAM, UNKNOWN
  2. HYDROCODONE BITARTRATE. [Suspect]
     Active Substance: HYDROCODONE BITARTRATE
     Indication: ARTHRITIS
     Dosage: UNK, UNK, UNK
  3. HYDROCODONE BITARTRATE (MFR UNKNOWN) [Suspect]
     Active Substance: HYDROCODONE BITARTRATE
     Indication: PAIN
  4. LACTULOSE. [Concomitant]
     Active Substance: LACTULOSE
     Indication: PRODUCT USED FOR UNKNOWN INDICATION
     Dosage: UNK, UNK, UNK
  5. IBRANCE [Concomitant]
     Active Substance: PALBOCICLIB
     Indication: BONE CANCER

REACTIONS (1)
  - Constipation [Not Recovered/Not Resolved]
